FAERS Safety Report 6097902-X (Version None)
Quarter: 2009Q1

REPORT INFORMATION
  Report Type: 
  Country: None (occurrence: None)
  Receive Date: 20090227
  Receipt Date: 20090225
  Transmission Date: 20090719
  Serious: Yes (Death)
  Sender: FDA-Public Use
  Company Number: PHHY2009MX06933

PATIENT
  Age: 59 Year
  Sex: Male

DRUGS (1)
  1. DIOVAN HCT [Suspect]
     Indication: HYPERTENSION
     Dosage: 160/25 MG, PER DAY
     Route: 048
     Dates: start: 20000601, end: 20080901

REACTIONS (1)
  - MYOCARDIAL INFARCTION [None]
